FAERS Safety Report 7273178-2 (Version None)
Quarter: 2011Q1

REPORT INFORMATION
  Report Type: 
  Country: None (occurrence: None)
  Receive Date: 20110203
  Receipt Date: 20101027
  Transmission Date: 20110831
  Serious: No
  Sender: FDA-Public Use
  Company Number: US-ABBOTT-10P-163-0682452-00

PATIENT
  Age: 53 Year
  Sex: Female
  Weight: 65.83 kg

DRUGS (1)
  1. SYNTHROID [Suspect]
     Indication: HYPOTHYROIDISM
     Route: 048
     Dates: start: 19930101, end: 20101023

REACTIONS (4)
  - DRUG DOSE OMISSION [None]
  - FEELING ABNORMAL [None]
  - WEIGHT INCREASED [None]
  - VISION BLURRED [None]
